FAERS Safety Report 7564010-8 (Version None)
Quarter: 2011Q2

REPORT INFORMATION
  Report Type: 
  Country: None (occurrence: None)
  Receive Date: 20110622
  Receipt Date: 20110614
  Transmission Date: 20111010
  Serious: Yes (Hospitalization, Other)
  Sender: FDA-Public Use
  Company Number: JP-ABBOTT-11P-087-0724084-00

PATIENT
  Sex: Female
  Weight: 32 kg

DRUGS (8)
  1. TACROLIMUS [Suspect]
  2. DICLOFENAC SODIUM [Concomitant]
     Indication: PRODUCT USED FOR UNKNOWN INDICATION
     Route: 054
  3. HUMIRA [Suspect]
     Indication: RHEUMATOID ARTHRITIS
     Route: 058
     Dates: start: 20081226, end: 20100528
  4. HUMIRA [Suspect]
     Dates: start: 20101004
  5. TACROLIMUS [Suspect]
     Indication: RHEUMATOID ARTHRITIS
     Route: 048
     Dates: start: 20101004
  6. PREDNISOLONE [Suspect]
     Indication: RHEUMATOID ARTHRITIS
     Dosage: 2.5 MILLIGRAM DAILY
     Route: 048
  7. RALOXIFENE HYDROCHLORIDE [Concomitant]
     Indication: PRODUCT USED FOR UNKNOWN INDICATION
     Route: 048
  8. LEVOFLOXACIN HYDRATE [Concomitant]
     Indication: PRODUCT USED FOR UNKNOWN INDICATION
     Route: 048

REACTIONS (6)
  - STAPHYLOCOCCAL INFECTION [None]
  - KYPHOSIS [None]
  - WOUND INFECTION [None]
  - OSTEOPOROTIC FRACTURE [None]
  - GENERAL PHYSICAL HEALTH DETERIORATION [None]
  - SPINAL COMPRESSION FRACTURE [None]
